FAERS Safety Report 5728763-3 (Version None)
Quarter: 2008Q2

REPORT INFORMATION
  Report Type: 
  Country: None (occurrence: None)
  Receive Date: 20080506
  Receipt Date: 20080425
  Transmission Date: 20081010
  Serious: Yes (Other)
  Sender: FDA-Public Use
  Company Number: B0518478A

PATIENT
  Age: 67 Year
  Sex: Female

DRUGS (8)
  1. ZOPHREN [Suspect]
     Indication: DRUG USE FOR UNKNOWN INDICATION
     Dosage: 8MG PER DAY
     Route: 042
     Dates: start: 20070605, end: 20070605
  2. ZOPHREN [Suspect]
     Route: 048
     Dates: start: 20070605, end: 20070605
  3. FOTEMUSTINE [Suspect]
     Indication: MALIGNANT MELANOMA
     Dosage: 195MG PER DAY
     Route: 042
     Dates: start: 20070605, end: 20070605
  4. ZESTRIL [Concomitant]
     Indication: HYPERTENSION
     Dosage: 20MG PER DAY
     Route: 048
     Dates: start: 20060101
  5. CIRKAN [Concomitant]
     Indication: PHLEBITIS
     Dosage: 1TAB TWICE PER DAY
     Route: 048
     Dates: start: 20060101
  6. ASPIRIN [Concomitant]
     Indication: DRUG USE FOR UNKNOWN INDICATION
     Dosage: 75MG PER DAY
     Route: 048
     Dates: start: 20060101
  7. ELISOR [Concomitant]
     Indication: DRUG USE FOR UNKNOWN INDICATION
     Dosage: 20MG PER DAY
     Route: 048
     Dates: start: 20060101
  8. PROPOFAN [Concomitant]
     Indication: DRUG USE FOR UNKNOWN INDICATION
     Route: 048

REACTIONS (7)
  - BLOOD PHOSPHORUS INCREASED [None]
  - CHOLESTASIS [None]
  - CHROMATURIA [None]
  - FAECES DISCOLOURED [None]
  - GAMMA-GLUTAMYLTRANSFERASE INCREASED [None]
  - JAUNDICE [None]
  - TRANSAMINASES INCREASED [None]
